FAERS Safety Report 8874767 (Version 7)
Quarter: 2014Q1

REPORT INFORMATION
  Report Type: Spontaneous
  Country: US (occurrence: US)
  Receive Date: 20121023
  Receipt Date: 20140225
  Transmission Date: 20141002
  Serious: Yes (Other)
  Sender: FDA-Public Use
  Company Number: US-PFIZER INC-2012261814

PATIENT
  Age: 53 Year
  Sex: Female
  Weight: 70.3 kg

DRUGS (8)
  1. LYRICA [Suspect]
     Indication: FIBROMYALGIA
     Dosage: 150 MG, 2X/DAY
     Route: 048
     Dates: start: 2008
  2. DIAZEPAM [Concomitant]
     Dosage: 2 MG, UNK
  3. FLUTICASONE PROPIONATE [Concomitant]
     Dosage: UNK
  4. NORCO [Concomitant]
     Indication: NECK PAIN
     Dosage: 5/325 MG EVERY 6 HOURS
  5. NORCO [Concomitant]
     Indication: HEADACHE
  6. IBUPROFEN [Concomitant]
     Indication: NECK PAIN
     Dosage: 600 MG, EVERY 6 HRS
  7. RANITIDINE [Concomitant]
     Indication: ABDOMINAL PAIN UPPER
     Dosage: 300 MG, 2X/DAY
     Route: 048
  8. SIMVASTATIN [Concomitant]
     Indication: BLOOD CHOLESTEROL INCREASED
     Dosage: 20 MG, DAILY

REACTIONS (10)
  - Hypoacusis [Unknown]
  - Pain [Unknown]
  - Burning sensation [Unknown]
  - Grip strength decreased [Unknown]
  - Dizziness [Unknown]
  - Nausea [Unknown]
  - Dry mouth [Unknown]
  - Dysgeusia [Unknown]
  - Thirst [Unknown]
  - Drug ineffective [Unknown]
